FAERS Safety Report 14046750 (Version 4)
Quarter: 2018Q3

REPORT INFORMATION
  Report Type: Report from Study
  Country: CO (occurrence: CO)
  Receive Date: 20171005
  Receipt Date: 20180910
  Transmission Date: 20181010
  Serious: Yes (Hospitalization, Other)
  Sender: FDA-Public Use
  Company Number: CO-BAYER-2017-163412

PATIENT
  Age: 72 Year
  Sex: Female

DRUGS (10)
  1. ADEMPAS [Suspect]
     Active Substance: RIOCIGUAT
     Indication: PULMONARY HYPERTENSION
     Dosage: UNK
  2. FOLIC ACID. [Concomitant]
     Active Substance: FOLIC ACID
  3. ADEMPAS [Suspect]
     Active Substance: RIOCIGUAT
     Indication: PULMONARY HYPERTENSION
     Dosage: 2.5 MG, TID
     Dates: start: 20170630
  4. PREGABALIN. [Concomitant]
     Active Substance: PREGABALIN
  5. ESOMEPRAZOLE [Concomitant]
     Active Substance: ESOMEPRAZOLE
     Dosage: UNK
  6. ATORVASTATIN [Concomitant]
     Active Substance: ATORVASTATIN
  7. LOSARTAN. [Concomitant]
     Active Substance: LOSARTAN
     Indication: HYPERTENSION
     Dosage: UNK
  8. FONDAPARINUX [Concomitant]
     Active Substance: FONDAPARINUX
  9. BISOPROLOL [Concomitant]
     Active Substance: BISOPROLOL
  10. ADEMPAS [Suspect]
     Active Substance: RIOCIGUAT
     Indication: PULMONARY HYPERTENSION
     Dosage: 2.0 MG, TID
     Route: 048

REACTIONS (17)
  - Intentional product use issue [Not Recovered/Not Resolved]
  - Haemorrhage intracranial [Recovering/Resolving]
  - Dizziness [Not Recovered/Not Resolved]
  - Inflammation [Recovering/Resolving]
  - Hypercoagulation [None]
  - Cardiomegaly [Not Recovered/Not Resolved]
  - Pulmonary thrombosis [Unknown]
  - Abdominal pain upper [Not Recovered/Not Resolved]
  - Vascular injury [Recovering/Resolving]
  - Abdominal distension [Not Recovered/Not Resolved]
  - Hypotension [Not Recovered/Not Resolved]
  - Eye inflammation [Not Recovered/Not Resolved]
  - Eye inflammation [Recovering/Resolving]
  - Catheterisation cardiac [Recovering/Resolving]
  - Constipation [Not Recovered/Not Resolved]
  - Syncope [Not Recovered/Not Resolved]
  - Inflammation [Not Recovered/Not Resolved]

NARRATIVE: CASE EVENT DATE: 201707
